FAERS Safety Report 14863988 (Version 2)
Quarter: 2018Q2

REPORT INFORMATION
  Report Type: Spontaneous
  Country: US (occurrence: US)
  Receive Date: 20180508
  Receipt Date: 20180509
  Transmission Date: 20180711
  Serious: No
  Sender: FDA-Public Use
  Company Number: US-MERZ NORTH AMERICA, INC.-18MRZ-00215

PATIENT
  Age: 58 Year
  Sex: Female

DRUGS (1)
  1. XEOMIN [Suspect]
     Active Substance: INCOBOTULINUMTOXINA
     Indication: SKIN COSMETIC PROCEDURE
     Dates: start: 20180102, end: 20180102

REACTIONS (3)
  - Hypoaesthesia [Recovering/Resolving]
  - Sensory disturbance [Unknown]
  - Paraesthesia [Recovering/Resolving]

NARRATIVE: CASE EVENT DATE: 2018
